FAERS Safety Report 9806514 (Version 7)
Quarter: 2014Q2

REPORT INFORMATION
  Report Type: Spontaneous
  Country: US (occurrence: US)
  Receive Date: 20140109
  Receipt Date: 20140422
  Transmission Date: 20141212
  Serious: Yes (Hospitalization, Other)
  Sender: FDA-Public Use
  Company Number: US-PFIZER INC-2014005129

PATIENT
  Age: 55 Year
  Sex: Female
  Weight: 93.88 kg

DRUGS (9)
  1. LYRICA [Suspect]
     Indication: FIBROMYALGIA
     Dosage: 100 MG, 3X/DAY
     Route: 048
     Dates: start: 2009, end: 201311
  2. LYRICA [Suspect]
     Dosage: 100 MG, 2X/DAY
     Route: 048
     Dates: start: 2009, end: 201312
  3. METOPROLOL TARTRATE [Suspect]
     Indication: HYPERTENSION
     Dosage: UNK
  4. ACCURETIC [Suspect]
     Indication: HYPERTENSION
     Dosage: UNK
  5. MOTRIN [Suspect]
     Indication: PAIN
     Dosage: UNK
     Dates: start: 201312
  6. JANUMET [Suspect]
     Indication: DIABETES MELLITUS
     Dosage: UNK
  7. CRESTOR [Concomitant]
     Indication: BLOOD CHOLESTEROL INCREASED
     Dosage: UNK
  8. AMITRIPTYLINE [Concomitant]
     Dosage: 10 MG, 1X/DAY
  9. CYMBALTA [Concomitant]
     Dosage: 30MG IN MORNING AND 60MG AT NIGHT

REACTIONS (10)
  - Influenza [Recovering/Resolving]
  - Blood glucose increased [Recovering/Resolving]
  - Blood pressure increased [Recovering/Resolving]
  - Dyspnoea [Not Recovered/Not Resolved]
  - Activities of daily living impaired [Unknown]
  - Pain [Not Recovered/Not Resolved]
  - Drug ineffective [Unknown]
  - Irritability [Unknown]
  - Feeling abnormal [Unknown]
  - Frustration [Unknown]
